FAERS Safety Report 21153748 (Version 2)
Quarter: 2022Q3

REPORT INFORMATION
  Report Type: Spontaneous
  Country: FR (occurrence: FR)
  Receive Date: 20220801
  Receipt Date: 20220916
  Transmission Date: 20221026
  Serious: Yes (Other)
  Sender: FDA-Public Use
  Company Number: FR-AFSSAPS-ST20221667

PATIENT
  Age: 52 Year
  Sex: Female

DRUGS (3)
  1. NAPROXEN [Suspect]
     Active Substance: NAPROXEN
     Indication: Dental care
     Dosage: 1 DOSAGE FORM
     Route: 048
     Dates: start: 20211006, end: 202110
  2. METRONIDAZOLE [Suspect]
     Active Substance: METRONIDAZOLE
     Indication: Dental care
     Dosage: 1 DOSAGE FORM
     Route: 048
     Dates: start: 20211006, end: 202110
  3. SPIRAMYCIN [Suspect]
     Active Substance: SPIRAMYCIN
     Indication: Dental care
     Dosage: 1 DOSAGE FORM
     Route: 048
     Dates: start: 20211006, end: 202110

REACTIONS (5)
  - Oedema [Recovered/Resolved]
  - Pruritus [Recovered/Resolved]
  - Paraesthesia [Recovered/Resolved]
  - Dysphagia [Recovered/Resolved]
  - Toxic skin eruption [Unknown]

NARRATIVE: CASE EVENT DATE: 20211011
